FAERS Safety Report 21134649 (Version 1)
Quarter: 2022Q3

REPORT INFORMATION
  Report Type: Spontaneous
  Country: GB (occurrence: GB)
  Receive Date: 20220727
  Receipt Date: 20220727
  Transmission Date: 20221027
  Serious: Yes (Hospitalization)
  Sender: FDA-Public Use
  Company Number: GB-CELLTRION INC.-2022GB011806

PATIENT

DRUGS (2)
  1. INFLIXIMAB [Suspect]
     Active Substance: INFLIXIMAB
     Indication: Crohn^s disease
     Dosage: UNK
     Route: 058
     Dates: start: 202207
  2. INFLIXIMAB [Suspect]
     Active Substance: INFLIXIMAB
     Indication: Crohn^s disease
     Dosage: HIGHER 4 WEEKLY DOSE OF INFLIXIMAB INFUSIONS (PATIENT INFORMED THAT HIS NEXT APPOINTMENT FOR HIS IV
     Route: 042

REACTIONS (3)
  - Hospitalisation [Unknown]
  - Drug ineffective [Unknown]
  - Off label use [Unknown]
